FAERS Safety Report 4666974-9 (Version None)
Quarter: 2005Q2

REPORT INFORMATION
  Report Type: 
  Country: None (occurrence: None)
  Receive Date: 20050516
  Receipt Date: 20040916
  Transmission Date: 20051028
  Serious: No
  Sender: FDA-Public Use
  Company Number: 2004-BP-08188RO

PATIENT
  Age: 53 Year
  Sex: Male
  Weight: 74.8 kg

DRUGS (3)
  1. MEPERIDINE HCL [Suspect]
     Indication: PAIN
     Dosage: 3 TABLETS EVERY 5 TO 6 HOURS AS NEEDED (100 MG, AS REQUIRED), PO
     Route: 048
     Dates: start: 20040913
  2. VALIUM [Concomitant]
  3. NYSTATIN [Concomitant]

REACTIONS (2)
  - DISORIENTATION [None]
  - DRUG TOXICITY [None]
